FAERS Safety Report 12471902 (Version 1)
Quarter: 2016Q2

REPORT INFORMATION
  Report Type: Spontaneous
  Country: JP (occurrence: JP)
  Receive Date: 20160616
  Receipt Date: 20160616
  Transmission Date: 20160815
  Serious: Yes (Other)
  Sender: FDA-Public Use
  Company Number: JP-PFIZER INC-2016299800

PATIENT
  Age: 27 Year
  Sex: Female

DRUGS (4)
  1. EFFEXOR [Suspect]
     Active Substance: VENLAFAXINE HYDROCHLORIDE
     Dosage: 75 MG, DAILY
     Route: 048
  2. SEDIEL [Concomitant]
     Active Substance: TANDOSPIRONE
     Dosage: UNK
  3. BELSOMRA [Concomitant]
     Active Substance: SUVOREXANT
     Dosage: UNK
  4. DEPAS [Concomitant]
     Active Substance: ETIZOLAM
     Dosage: UNK

REACTIONS (1)
  - Altered state of consciousness [Unknown]
